FAERS Safety Report 8092430-4 (Version None)
Quarter: 2011Q4

REPORT INFORMATION
  Report Type: 
  Country: None (occurrence: None)
  Receive Date: 20111222
  Receipt Date: 20111101
  Transmission Date: 20120403
  Serious: Yes (Hospitalization)
  Sender: FDA-Public Use
  Company Number: UTC-010779

PATIENT
  Age: 59 Year
  Sex: Female
  Weight: 104.5 kg

DRUGS (1)
  1. TYVASO [Suspect]
     Indication: PULMONARY ARTERIAL HYPERTENSION
     Dosage: 18 - 54 MICROGRAMS (4 IN 1 D), INHALATION
     Route: 055
     Dates: start: 20110623

REACTIONS (1)
  - PNEUMONIA [None]
